FAERS Safety Report 7982459-6 (Version None)
Quarter: 2011Q4

REPORT INFORMATION
  Report Type: 
  Country: None (occurrence: None)
  Receive Date: 20111215
  Receipt Date: 20111211
  Transmission Date: 20120403
  Serious: Yes (Death)
  Sender: FDA-Public Use
  Company Number: PHHY2011PL108592

PATIENT

DRUGS (1)
  1. CLOZAPINE [Suspect]

REACTIONS (1)
  - POISONING [None]
